FAERS Safety Report 4943949-3 (Version None)
Quarter: 2006Q1

REPORT INFORMATION
  Report Type: 
  Country: None (occurrence: None)
  Receive Date: 20060313
  Receipt Date: 20060313
  Transmission Date: 20060701
  Serious: Yes (Life-Threatening, Other)
  Sender: FDA-Public Use
  Company Number: None

PATIENT
  Age: 33 Year
  Sex: Female
  Weight: 74.8435 kg

DRUGS (1)
  1. NORTRIPTYLINE  25MG      MYLAN [Suspect]
     Indication: MIGRAINE
     Dosage: 1 CAPSULE   DAILY IN PM   PO
     Route: 048
     Dates: start: 20050512, end: 20050615

REACTIONS (4)
  - ARRHYTHMIA [None]
  - DYSPNOEA [None]
  - EXTRASYSTOLES [None]
  - VENTRICULAR EXTRASYSTOLES [None]
